FAERS Safety Report 7815116-7 (Version None)
Quarter: 2011Q4

REPORT INFORMATION
  Report Type: 
  Country: None (occurrence: None)
  Receive Date: 20111014
  Receipt Date: 20111004
  Transmission Date: 20120403
  Serious: Yes (Hospitalization)
  Sender: FDA-Public Use
  Company Number: US-JNJFOC-20110906753

PATIENT
  Sex: Female
  Weight: 25.86 kg

DRUGS (7)
  1. IRON [Concomitant]
  2. REMICADE [Suspect]
     Indication: CROHN'S DISEASE
     Dosage: FIRST INFUSION
     Route: 042
     Dates: start: 20110825
  3. REMICADE [Suspect]
     Dosage: SECONF INFUSION
     Route: 042
     Dates: start: 20110908
  4. PRILOSEC [Concomitant]
  5. PREDNISONE [Concomitant]
  6. M.V.I. [Concomitant]
  7. CALCIUM WITH VITAMIN D [Concomitant]

REACTIONS (1)
  - ABDOMINAL ABSCESS [None]
